FAERS Safety Report 8378590-6 (Version None)
Quarter: 2012Q2

REPORT INFORMATION
  Report Type: 
  Country: None (occurrence: None)
  Receive Date: 20120522
  Receipt Date: 20110811
  Transmission Date: 20120825
  Serious: No
  Sender: FDA-Public Use
  Company Number: US-ASTRAZENECA-2011SE48803

PATIENT
  Age: 21576 Day
  Sex: Male

DRUGS (10)
  1. METOPROLOL TARTRATE [Concomitant]
  2. VITAMIN D [Concomitant]
  3. ZOLOFT [Concomitant]
  4. METHADONE HCL [Concomitant]
  5. NITROGLYCERIN [Concomitant]
  6. RANEXA [Concomitant]
  7. FISH OIL [Concomitant]
  8. PRILOSEC [Suspect]
     Route: 048
     Dates: start: 20110609
  9. NORVASC [Concomitant]
  10. ASPIRIN [Concomitant]

REACTIONS (4)
  - FATIGUE [None]
  - PNEUMONIA ASPIRATION [None]
  - BRONCHITIS [None]
  - MAJOR DEPRESSION [None]
